FAERS Safety Report 7432309-1 (Version None)
Quarter: 2011Q2

REPORT INFORMATION
  Report Type: 
  Country: None (occurrence: None)
  Receive Date: 20110422
  Receipt Date: 20110418
  Transmission Date: 20111010
  Serious: Yes (Other)
  Sender: FDA-Public Use
  Company Number: US-PFIZER INC-2009306661

PATIENT
  Sex: Female
  Weight: 92.971 kg

DRUGS (12)
  1. GABAPENTIN [Suspect]
     Indication: NEUROPATHY PERIPHERAL
     Dosage: 300 MG, TWO IN THE MORNING ONE IN THE AFTERNOON AND ONE IN THE NIGHT
     Route: 048
     Dates: start: 20080101, end: 20100106
  2. GABAPENTIN [Suspect]
     Indication: NEURALGIA
  3. NEURONTIN [Suspect]
     Dosage: 300 MG, UNK
  4. COUMADIN [Concomitant]
     Indication: ANTICOAGULANT THERAPY
     Dosage: 5 MG FOR THE FIRST 6 DAYS, 7.5 MG ON THE SEVENTH DAY
     Route: 048
  5. HYDROCHLOROTHIAZIDE [Concomitant]
     Indication: HYPERTENSION
     Dosage: 25 MG, 1X/DAY
  6. GABAPENTIN [Suspect]
     Dosage: UNK
  7. NEURONTIN [Suspect]
     Indication: NEURALGIA
     Dosage: 600 MG, 2X/DAY
     Route: 048
     Dates: start: 20100101
  8. FLAGYL [Suspect]
     Indication: LIVER ABSCESS
     Dosage: UNK
  9. GABAPENTIN [Suspect]
     Dosage: 600MG IN THE MORNING, 300MG IN THE AFTERNOON, 600MG IN THE EVENING
     Dates: start: 20100106
  10. TOPROL-XL [Concomitant]
     Indication: HYPERTENSION
     Dosage: 12.5 MG, 2X/DAY
     Route: 048
  11. ZESTRIL [Concomitant]
     Indication: HYPERTENSION
     Dosage: 40 MG, 1X/DAY
     Route: 048
  12. CARDURA [Concomitant]
     Indication: HYPERTENSION
     Dosage: 1 MG, 1X/DAY
     Route: 048

REACTIONS (6)
  - HYPERTENSION [None]
  - PERIPHERAL SENSORY NEUROPATHY [None]
  - AMNESIA [None]
  - PAIN [None]
  - DRUG INEFFECTIVE [None]
  - WALKING AID USER [None]
